FAERS Safety Report 5019758-6 (Version None)
Quarter: 2006Q2

REPORT INFORMATION
  Report Type: 
  Country: None (occurrence: None)
  Receive Date: 20060601
  Receipt Date: 20060519
  Transmission Date: 20061013
  Serious: Yes (Death)
  Sender: FDA-Public Use
  Company Number: 2006066121

PATIENT
  Sex: Male

DRUGS (2)
  1. MAGNEX (SULBACTAM, CEFOPERAZONE) [Suspect]
     Indication: PROPHYLAXIS
     Dosage: 2 GRAM (1 GRAM,2 IN 1 D), INTRAVENOUS
     Route: 042
  2. CIPRAN (CIPROFLOXACIN) [Concomitant]

REACTIONS (1)
  - ACUTE RESPIRATORY DISTRESS SYNDROME [None]
